FAERS Safety Report 6899995-6 (Version None)
Quarter: 2010Q3

REPORT INFORMATION
  Report Type: 
  Country: None (occurrence: None)
  Receive Date: 20100803
  Receipt Date: 20100721
  Transmission Date: 20110219
  Serious: No
  Sender: FDA-Public Use
  Company Number: DE-SOLVAY-00310003422

PATIENT
  Age: 66 Year
  Sex: Male
  Weight: 57 kg

DRUGS (5)
  1. CREON [Suspect]
     Indication: PANCREATICODUODENECTOMY
     Dosage: DAILY DOSE:  UNKNOWN; UNIT DOSE: 25,000; FREQ: 3TIMES/DAY; AT EACH MEAL WITH FAT 1-3 PIECES 25,000
     Route: 048
     Dates: start: 20080901
  2. CREON [Suspect]
     Dosage: DAILY DOSE:  UNKNOWN; UNIT DOSE: 10,000; FREQ: 3TIMES/DAY; AT EACH MEAL WITH FAT 1-3 10,000
     Route: 048
  3. VITAMIN C INFUSION [Concomitant]
     Indication: PRODUCT USED FOR UNKNOWN INDICATION
     Dosage: DAILY DOSE:  UNKNOWN
     Route: 065
  4. CALCIUM STADA [Concomitant]
     Indication: PRODUCT USED FOR UNKNOWN INDICATION
     Dosage: DAILY DOSE: 1 DRAG
     Route: 065
  5. ISCADOR [Concomitant]
     Indication: PRODUCT USED FOR UNKNOWN INDICATION
     Dosage: DAILY DOSE:  UNKNOWN; FREQUENCY: TWO TIMES A WEEK
     Route: 058

REACTIONS (5)
  - ABDOMINAL PAIN UPPER [None]
  - GLOSSITIS [None]
  - INCORRECT DRUG DOSAGE FORM ADMINISTERED [None]
  - NAUSEA [None]
  - STOMATITIS [None]
